FAERS Safety Report 14657874 (Version 1)
Quarter: 2018Q1

REPORT INFORMATION
  Report Type: Spontaneous
  Country: US (occurrence: US)
  Receive Date: 20180320
  Receipt Date: 20180320
  Transmission Date: 20180509
  Serious: No
  Sender: FDA-Public Use
  Company Number: US-TEVA-763328ACC

PATIENT
  Sex: Female

DRUGS (1)
  1. SUCRALFATE TABLETS [Suspect]
     Active Substance: SUCRALFATE

REACTIONS (4)
  - Malaise [Unknown]
  - Oesophageal pain [Unknown]
  - Dyspepsia [Unknown]
  - Drug ineffective [Unknown]
